FAERS Safety Report 24202971 (Version 1)
Quarter: 2024Q3

REPORT INFORMATION
  Report Type: Spontaneous
  Country: US (occurrence: US)
  Receive Date: 20240813
  Receipt Date: 20240813
  Transmission Date: 20241016
  Serious: No
  Sender: SPECGX
  Company Number: US-SPECGX-T202301845

PATIENT
  Sex: Female
  Weight: 68 kg

DRUGS (13)
  1. OXYCODONE [Interacting]
     Active Substance: OXYCODONE
     Indication: Back pain
     Dosage: 10 MILLIGRAM, 2-3 TIMES A DAY (AT NIGHT)
     Route: 048
     Dates: start: 20230830, end: 202309
  2. OXYCODONE [Interacting]
     Active Substance: OXYCODONE
     Dosage: UNK (HALF OF THE MEDICATION)
     Route: 048
     Dates: start: 20230907
  3. SELEGILINE HYDROCHLORIDE [Interacting]
     Active Substance: SELEGILINE HYDROCHLORIDE
     Indication: Parkinson^s disease
     Dosage: 5 MILLIGRAM, BID (MORNING AND LATE AFTERNOON)
     Route: 065
  4. CARBIDOPA\LEVODOPA [Concomitant]
     Active Substance: CARBIDOPA\LEVODOPA
     Indication: Parkinson^s disease
     Dosage: 2 DOSAGE FORM (2 TABLETS 5 TIMES A DAY, 25/100 MG AND 50/200 MG (ONCE A DAY AND NIGHT))
     Route: 065
  5. ENTACAPONE [Concomitant]
     Active Substance: ENTACAPONE
     Indication: Parkinson^s disease
     Dosage: 200 MILLIGRAM, (1 TABLET 5 TIMES A DAY)
     Route: 065
  6. ELIQUIS [Concomitant]
     Active Substance: APIXABAN
     Indication: Atrial fibrillation
     Dosage: 5 MILLIGRAM, BID
     Route: 065
  7. ATENOLOL [Concomitant]
     Active Substance: ATENOLOL
     Indication: Atrial fibrillation
     Dosage: 25 MILLIGRAM, HALF TABLET PER NIGHT
     Route: 065
  8. CHOLECALCIFEROL [Concomitant]
     Active Substance: CHOLECALCIFEROL
     Indication: Skin disorder
     Dosage: UNK
     Route: 065
  9. CHOLECALCIFEROL [Concomitant]
     Active Substance: CHOLECALCIFEROL
     Indication: Nail disorder
  10. VITAMIN B12 [Concomitant]
     Active Substance: CYANOCOBALAMIN
     Indication: Skin disorder
     Dosage: UNK
     Route: 065
  11. VITAMIN B12 [Concomitant]
     Active Substance: CYANOCOBALAMIN
     Indication: Nail disorder
  12. VITAMIN C [Concomitant]
     Active Substance: ASCORBIC ACID
     Indication: Skin disorder
     Dosage: UNK
     Route: 065
  13. VITAMIN C [Concomitant]
     Active Substance: ASCORBIC ACID
     Indication: Nail disorder

REACTIONS (6)
  - Throat irritation [Recovering/Resolving]
  - Tinnitus [Recovering/Resolving]
  - Somnolence [Recovering/Resolving]
  - Drug interaction [Unknown]
  - Wrong technique in product usage process [Unknown]
  - Drug ineffective [Unknown]

NARRATIVE: CASE EVENT DATE: 20230101
